FAERS Safety Report 7274732-4 (Version None)
Quarter: 2011Q1

REPORT INFORMATION
  Report Type: 
  Country: None (occurrence: None)
  Receive Date: 20110204
  Receipt Date: 20110123
  Transmission Date: 20110831
  Serious: No
  Sender: FDA-Public Use
  Company Number: US-B.I. PHARMACEUTICALS,INC./RIDGEFIELD-2011-BP-01622BP

PATIENT
  Age: 63 Year
  Sex: Female

DRUGS (9)
  1. HCT [Concomitant]
  2. LISINOPRIL [Concomitant]
  3. CLONAZEPAM [Concomitant]
  4. ASPIRIN [Concomitant]
  5. C-PAP [Concomitant]
  6. SPIRIVA [Suspect]
     Indication: CHRONIC OBSTRUCTIVE PULMONARY DISEASE
     Dosage: 18 MCG
     Route: 055
     Dates: start: 20100201
  7. COREG [Concomitant]
  8. SYMBARTIN [Concomitant]
  9. ADVAIR [Concomitant]

REACTIONS (1)
  - DRUG INEFFECTIVE [None]
